FAERS Safety Report 5375097-5 (Version None)
Quarter: 2007Q2

REPORT INFORMATION
  Report Type: 
  Country: None (occurrence: None)
  Receive Date: 20070629
  Receipt Date: 20070329
  Transmission Date: 20071010
  Serious: No
  Sender: FDA-Public Use
  Company Number: US-ASTRAZENECA-2007UW06394

PATIENT
  Sex: Male

DRUGS (2)
  1. ZOLADEX [Suspect]
     Indication: PROSTATE CANCER
     Route: 058
  2. IMPLANTED SEEDS [Concomitant]

REACTIONS (3)
  - HOT FLUSH [None]
  - NIGHT SWEATS [None]
  - WEIGHT INCREASED [None]
